FAERS Safety Report 4442991-9 (Version None)
Quarter: 2004Q3

REPORT INFORMATION
  Report Type: 
  Country: None (occurrence: None)
  Receive Date: 20040908
  Receipt Date: 20040317
  Transmission Date: 20050211
  Serious: Yes (Other)
  Sender: FDA-Public Use
  Company Number: PHBS2004CH03710

PATIENT
  Age: 42 Year
  Sex: Male

DRUGS (2)
  1. LAMISIL [Suspect]
     Indication: NAIL TINEA
     Dosage: 250 MG/D
     Route: 048
     Dates: start: 20040306, end: 20040316
  2. CONDROSULF [Concomitant]
     Dosage: 800 MG/D

REACTIONS (1)
  - GOUT [None]
